FAERS Safety Report 6867502-X (Version None)
Quarter: 2010Q3

REPORT INFORMATION
  Report Type: 
  Country: None (occurrence: None)
  Receive Date: 20100722
  Receipt Date: 20100715
  Transmission Date: 20110219
  Serious: Yes (Death)
  Sender: FDA-Public Use
  Company Number: ID-JNJFOC-20100704938

PATIENT
  Age: 19 Year
  Sex: Male
  Weight: 50 kg

DRUGS (1)
  1. DORIPENEM MONOHYDRATE [Suspect]
     Indication: PNEUMONIA
     Route: 041
     Dates: start: 20100622

REACTIONS (2)
  - BRADYCARDIA [None]
  - OXYGEN SATURATION DECREASED [None]
